FAERS Safety Report 4625177-4 (Version None)
Quarter: 2005Q2

REPORT INFORMATION
  Report Type: 
  Country: None (occurrence: None)
  Receive Date: 20050401
  Receipt Date: 20050309
  Transmission Date: 20051028
  Serious: Yes (Hospitalization)
  Sender: FDA-Public Use
  Company Number: FR-BRISTOL-MYERS SQUIBB COMPANY-12892337

PATIENT
  Age: 53 Year
  Sex: Male
  Weight: 59 kg

DRUGS (6)
  1. VIDEX EC [Suspect]
     Route: 048
  2. EPIVIR [Suspect]
     Dates: start: 19960425
  3. VIRAMUNE [Suspect]
     Dates: start: 20030410
  4. BACTRIM [Suspect]
  5. LEXOMIL [Suspect]
     Dates: start: 20041229
  6. DEROXAT [Suspect]
     Dates: start: 20041229

REACTIONS (7)
  - ECZEMA [None]
  - EOSINOPHILIA [None]
  - GAMMA-GLUTAMYLTRANSFERASE INCREASED [None]
  - LOWER RESPIRATORY TRACT INFECTION [None]
  - POLYCYTHAEMIA [None]
  - PULMONARY GRANULOMA [None]
  - TUBERCULOSIS [None]
